FAERS Safety Report 19134448 (Version 5)
Quarter: 2021Q3

REPORT INFORMATION
  Report Type: Spontaneous
  Country: US (occurrence: US)
  Receive Date: 20210414
  Receipt Date: 20210716
  Transmission Date: 20211014
  Serious: No
  Sender: FDA-Public Use
  Company Number: US-GLAXOSMITHKLINE-US2021AMR082152

PATIENT
  Sex: Female
  Weight: 64.2 kg

DRUGS (3)
  1. ZEJULA [Suspect]
     Active Substance: NIRAPARIB
     Dosage: 100 MG, QD
     Route: 048
  2. ZEJULA [Suspect]
     Active Substance: NIRAPARIB
     Indication: FALLOPIAN TUBE CANCER
     Dosage: 200 MG, QD
     Route: 048
     Dates: start: 20210321
  3. ZEJULA [Suspect]
     Active Substance: NIRAPARIB
     Dosage: 100 MG, QD
     Route: 048
     Dates: start: 20210331

REACTIONS (10)
  - Fatigue [Recovered/Resolved]
  - Depression [Recovered/Resolved]
  - Middle insomnia [Unknown]
  - Tooth infection [Unknown]
  - Dyspnoea exertional [Unknown]
  - Hypertension [Unknown]
  - Malaise [Unknown]
  - Palpitations [Unknown]
  - Nausea [Recovered/Resolved]
  - Lethargy [Recovered/Resolved]

NARRATIVE: CASE EVENT DATE: 2021
